FAERS Safety Report 24880402 (Version 2)
Quarter: 2025Q2

REPORT INFORMATION
  Report Type: Spontaneous
  Country: CA (occurrence: IN)
  Receive Date: 20250123
  Receipt Date: 20250410
  Transmission Date: 20250716
  Serious: Yes (Other)
  Sender: INTRA-CELLULAR THERAPIES
  Company Number: CA-INTRA-CELLULAR THERAPIES, INC.-2025ICT00034

PATIENT
  Age: 60 Year
  Sex: Female

DRUGS (5)
  1. CAPLYTA [Suspect]
     Active Substance: LUMATEPERONE
     Indication: Bipolar I disorder
  2. CAPLYTA [Suspect]
     Active Substance: LUMATEPERONE
  3. LITHIUM [Concomitant]
     Active Substance: LITHIUM
  4. QUETIAPINE [Concomitant]
     Active Substance: QUETIAPINE
     Indication: Depressive symptom
  5. TELMISARTAN [Concomitant]
     Active Substance: TELMISARTAN
     Indication: Hypertension

REACTIONS (1)
  - Oculogyric crisis [Recovered/Resolved]
